FAERS Safety Report 8115396-7 (Version None)
Quarter: 2012Q1

REPORT INFORMATION
  Report Type: 
  Country: None (occurrence: None)
  Receive Date: 20120206
  Receipt Date: 20120206
  Transmission Date: 20120608
  Serious: Yes (Other)
  Sender: FDA-Public Use
  Company Number: None

PATIENT
  Age: 63 Year
  Sex: Female
  Weight: 72.574 kg

DRUGS (1)
  1. VENLAFAXINE HCL [Suspect]
     Dosage: 1 75 MG. CAPSULE
     Route: 048
     Dates: start: 20120129, end: 20120205

REACTIONS (3)
  - INSOMNIA [None]
  - HEART RATE INCREASED [None]
  - DYSPNOEA [None]
